FAERS Safety Report 18275906 (Version 1)
Quarter: 2020Q3

REPORT INFORMATION
  Report Type: Spontaneous
  Country: US (occurrence: US)
  Receive Date: 20200916
  Receipt Date: 20200916
  Transmission Date: 20201103
  Serious: Yes (Hospitalization, Other)
  Sender: FDA-Public Use
  Company Number: US-ROCHE-2675064

PATIENT
  Age: 61 Year
  Sex: Female
  Weight: 112.14 kg

DRUGS (3)
  1. REMICADE [Concomitant]
     Active Substance: INFLIXIMAB
  2. ACTEMRA [Suspect]
     Active Substance: TOCILIZUMAB
     Indication: RHEUMATOID ARTHRITIS
     Dosage: ONGOING
     Route: 058
     Dates: start: 2018
  3. ORENCIA [Concomitant]
     Active Substance: ABATACEPT

REACTIONS (6)
  - Humerus fracture [Recovering/Resolving]
  - Pain [Recovering/Resolving]
  - Pulmonary hypertension [Unknown]
  - Pyrexia [Recovering/Resolving]
  - Ill-defined disorder [Unknown]
  - Upper limb fracture [Recovering/Resolving]

NARRATIVE: CASE EVENT DATE: 20200113
